FAERS Safety Report 9842656 (Version 1)
Quarter: 2013Q4

REPORT INFORMATION
  Report Type: Spontaneous
  Country: US (occurrence: None)
  Receive Date: 20131223
  Receipt Date: 20131223
  Transmission Date: 20140711
  Serious: Yes (Other)
  Sender: FDA-Public Use
  Company Number: 219776LEO

PATIENT
  Sex: Female

DRUGS (2)
  1. PICATO (0.015%, GEL) [Suspect]
     Indication: PRECANCEROUS CELLS PRESENT
     Route: 061
     Dates: start: 20121127
  2. PICATO (0.05%, GEL) [Suspect]
     Indication: PRECANCEROUS CELLS PRESENT
     Route: 061
     Dates: start: 20121127

REACTIONS (5)
  - Application site erythema [None]
  - Application site scab [None]
  - Application site pruritus [None]
  - Application site pain [None]
  - Drug administered at inappropriate site [None]
